FAERS Safety Report 19589681 (Version 2)
Quarter: 2021Q3

REPORT INFORMATION
  Report Type: Spontaneous
  Country: JP (occurrence: JP)
  Receive Date: 20210721
  Receipt Date: 20210727
  Transmission Date: 20211014
  Serious: No
  Sender: FDA-Public Use
  Company Number: JP-ASTRAZENECA-2021A625485

PATIENT
  Age: 50 Year
  Sex: Female

DRUGS (2)
  1. LYNPARZA [Suspect]
     Active Substance: OLAPARIB
     Indication: BREAST CANCER STAGE I
     Dosage: DOSE UNKNOWN
     Route: 048
     Dates: start: 201912
  2. LYNPARZA [Suspect]
     Active Substance: OLAPARIB
     Indication: BREAST CANCER STAGE I
     Dosage: WAS REDUCED TO 250 MG/DOSE
     Route: 048

REACTIONS (2)
  - Anaemia [Recovered/Resolved]
  - Nausea [Recovering/Resolving]
